FAERS Safety Report 8475958-4 (Version None)
Quarter: 2012Q2

REPORT INFORMATION
  Report Type: 
  Country: None (occurrence: None)
  Receive Date: 20120628
  Receipt Date: 20120625
  Transmission Date: 20120825
  Serious: No
  Sender: FDA-Public Use
  Company Number: US-PFIZER INC-2012152280

PATIENT
  Sex: Male
  Weight: 82 kg

DRUGS (1)
  1. GENOTROPIN [Suspect]
     Indication: DWARFISM
     Dosage: 4 MG, 1X/DAY
     Route: 058
     Dates: start: 20120604

REACTIONS (3)
  - OEDEMA [None]
  - FLUID RETENTION [None]
  - INJECTION SITE PAIN [None]
